FAERS Safety Report 8202781-8 (Version None)
Quarter: 2012Q1

REPORT INFORMATION
  Report Type: 
  Country: None (occurrence: None)
  Receive Date: 20120312
  Receipt Date: 20120312
  Transmission Date: 20120608
  Serious: Yes (Hospitalization)
  Sender: FDA-Public Use
  Company Number: None

PATIENT
  Sex: Female
  Weight: 770.19 kg

DRUGS (7)
  1. LORATADINE [Concomitant]
  2. OYACO 500 [Concomitant]
  3. ZONISAMIDE [Suspect]
     Indication: CONVULSION
     Dosage: ZONISAMIDE 200MG
     Route: 048
     Dates: start: 20110831, end: 20110914
  4. ZONISAMIDE [Concomitant]
     Dosage: ZONISAMIDE 200MG
     Route: 048
     Dates: start: 20110831, end: 20110914
  5. OMEPRAZOLE [Concomitant]
  6. KEPPA [Concomitant]
  7. ENALAPRIL MALEATE [Concomitant]

REACTIONS (4)
  - SWELLING FACE [None]
  - RASH PRURITIC [None]
  - ERYTHEMA [None]
  - URTICARIA [None]
